FAERS Safety Report 18603343 (Version 1)
Quarter: 2020Q4

REPORT INFORMATION
  Report Type: Spontaneous
  Country: GB (occurrence: GB)
  Receive Date: 20201210
  Receipt Date: 20201210
  Transmission Date: 20210114
  Serious: Yes (Other)
  Sender: FDA-Public Use
  Company Number: GB-JNJFOC-20201206189

PATIENT
  Age: 36 Year
  Sex: Male
  Weight: 140 kg

DRUGS (1)
  1. STELARA [Suspect]
     Active Substance: USTEKINUMAB
     Indication: PSORIASIS
     Route: 058
     Dates: start: 2013

REACTIONS (4)
  - Subcutaneous abscess [Unknown]
  - Groin abscess [Unknown]
  - Hidradenitis [Unknown]
  - Abscess limb [Unknown]
